FAERS Safety Report 8838360 (Version 1)
Quarter: 2012Q4

REPORT INFORMATION
  Report Type: 
  Country: GB (occurrence: GB)
  Receive Date: 20121012
  Receipt Date: 20121012
  Transmission Date: 20130627
  Serious: Yes (Other)
  Sender: FDA-Public Use
  Company Number: PHHY2012GB088237

PATIENT
  Age: 80 Year
  Sex: Female
  Weight: 55 kg

DRUGS (3)
  1. CLOPIDOGREL [Suspect]
     Indication: ATRIAL FIBRILLATION
     Dosage: 75 Milligram Daily;
     Route: 048
     Dates: start: 20120703, end: 20120711
  2. CLOPIDOGREL [Suspect]
     Indication: MYOCARDIAL ISCHAEMIA
  3. BISOPROLOL [Suspect]
     Dates: start: 20120704, end: 20120707

REACTIONS (7)
  - Tinnitus [Not Recovered/Not Resolved]
  - Insomnia [Not Recovered/Not Resolved]
  - Malaise [Not Recovered/Not Resolved]
  - Depression [Not Recovered/Not Resolved]
  - Dizziness [Not Recovered/Not Resolved]
  - Confusional state [Not Recovered/Not Resolved]
  - Vertigo [Not Recovered/Not Resolved]
